FAERS Safety Report 15694761 (Version 4)
Quarter: 2019Q3

REPORT INFORMATION
  Report Type: Spontaneous
  Country: JP (occurrence: JP)
  Receive Date: 20181206
  Receipt Date: 20190726
  Transmission Date: 20191004
  Serious: Yes (Other)
  Sender: FDA-Public Use
  Company Number: JP-PFIZER INC-2018496295

PATIENT
  Age: 16 Month
  Sex: Male
  Weight: 8.9 kg

DRUGS (4)
  1. SOLU-MEDROL [Suspect]
     Active Substance: METHYLPREDNISOLONE SODIUM SUCCINATE
     Indication: ASTHMA
     Dosage: 12 MG, SINGLE
     Route: 041
     Dates: start: 20181126, end: 20181126
  2. SOLU-MEDROL [Suspect]
     Active Substance: METHYLPREDNISOLONE SODIUM SUCCINATE
     Indication: ASTHMA
     Dosage: 10 MG
     Route: 041
     Dates: start: 20181126, end: 20181128
  3. ONON [Concomitant]
     Active Substance: PRANLUKAST
     Dosage: UNK
     Route: 048
  4. CEFTRIAXONE SODIUM 0.5G PFIZER [Suspect]
     Active Substance: CEFTRIAXONE SODIUM
     Indication: BRONCHITIS
     Dosage: 300 MG, 2X/DAY
     Route: 041
     Dates: start: 20181126, end: 20181128

REACTIONS (3)
  - Hypercapnia [Unknown]
  - Altered state of consciousness [Recovered/Resolved]
  - Metabolic alkalosis [Unknown]

NARRATIVE: CASE EVENT DATE: 20181127
